FAERS Safety Report 7420954-9 (Version None)
Quarter: 2011Q2

REPORT INFORMATION
  Report Type: 
  Country: None (occurrence: None)
  Receive Date: 20110418
  Receipt Date: 20110411
  Transmission Date: 20111010
  Serious: Yes (Other)
  Sender: FDA-Public Use
  Company Number: B0713713A

PATIENT
  Age: 65 Year
  Sex: Female

DRUGS (4)
  1. ORAL STEROIDS [Concomitant]
     Route: 065
  2. MABTHERA [Concomitant]
     Route: 065
  3. REVOLADE [Suspect]
     Dosage: 50MG PER DAY
     Route: 065
  4. IMMUNE GLOBULIN NOS [Concomitant]
     Route: 042

REACTIONS (2)
  - ALANINE AMINOTRANSFERASE INCREASED [None]
  - ASPARTATE AMINOTRANSFERASE INCREASED [None]
